FAERS Safety Report 25628634 (Version 2)
Quarter: 2025Q3

REPORT INFORMATION
  Report Type: Other
  Country: CA (occurrence: CA)
  Receive Date: 20250731
  Receipt Date: 20250807
  Transmission Date: 20251021
  Serious: Yes (Hospitalization, Other)
  Sender: INCYTE
  Company Number: CA-002147023-NVSC2025CA120184

PATIENT
  Age: 54 Year

DRUGS (4)
  1. RUXOLITINIB [Suspect]
     Active Substance: RUXOLITINIB
     Indication: Product used for unknown indication
     Route: 065
  2. REMICADE [Suspect]
     Active Substance: INFLIXIMAB
     Indication: Colitis ulcerative
  3. REMICADE [Suspect]
     Active Substance: INFLIXIMAB
  4. REMICADE [Suspect]
     Active Substance: INFLIXIMAB

REACTIONS (8)
  - Anal cyst [Recovered/Resolved]
  - Dysbiosis [Recovered/Resolved]
  - Hepatic enzyme increased [Recovered/Resolved]
  - Lymphadenopathy [Recovered/Resolved]
  - Malaise [Recovered/Resolved]
  - Off label use [Recovered/Resolved]
  - Pouchitis [Recovered/Resolved]
  - Pyrexia [Recovered/Resolved]
